FAERS Safety Report 4387048-0 (Version None)
Quarter: 2004Q2

REPORT INFORMATION
  Report Type: 
  Country: None (occurrence: None)
  Receive Date: 20040630
  Receipt Date: 20040301
  Transmission Date: 20050107
  Serious: No
  Sender: FDA-Public Use
  Company Number: US-GLAXOSMITHKLINE-A0500691A

PATIENT
  Age: 21 Year
  Sex: Female
  Weight: 72.7 kg

DRUGS (8)
  1. ADVAIR HFA [Suspect]
     Indication: ASTHMA
     Dosage: 1PUFF TWICE PER DAY
     Route: 055
     Dates: start: 20030801, end: 20030901
  2. ALBUTEROL [Concomitant]
  3. LOESTRIN 1.5/30 [Concomitant]
     Route: 048
  4. BENTYL [Concomitant]
     Route: 065
  5. TRAMADOL [Concomitant]
     Route: 065
  6. BEXTRA [Concomitant]
     Route: 065
  7. BIRTH CONTROL [Concomitant]
     Route: 048
  8. PREDNISONE [Concomitant]
     Route: 065

REACTIONS (8)
  - CHEST DISCOMFORT [None]
  - CHEST PAIN [None]
  - COUGH [None]
  - DIZZINESS [None]
  - DYSPNOEA [None]
  - FATIGUE [None]
  - HYPOAESTHESIA [None]
  - WHEEZING [None]
